FAERS Safety Report 8064485-4 (Version None)
Quarter: 2012Q1

REPORT INFORMATION
  Report Type: 
  Country: None (occurrence: None)
  Receive Date: 20120123
  Receipt Date: 20120121
  Transmission Date: 20120608
  Serious: Yes (Other)
  Sender: FDA-Public Use
  Company Number: US-PFIZER INC-2012017502

PATIENT
  Sex: Female
  Weight: 87.075 kg

DRUGS (2)
  1. CHANTIX [Suspect]
     Indication: SMOKING CESSATION THERAPY
     Dosage: 0.5 MG,DAILY
     Route: 048
     Dates: start: 20120117
  2. CRESTOR [Concomitant]
     Dosage: 5 MG,DAILY

REACTIONS (1)
  - BLOOD PRESSURE INCREASED [None]
